FAERS Safety Report 4288966-4 (Version None)
Quarter: 2004Q1

REPORT INFORMATION
  Report Type: 
  Country: None (occurrence: None)
  Receive Date: 20040206
  Receipt Date: 20040123
  Transmission Date: 20041129
  Serious: Yes (Hospitalization)
  Sender: FDA-Public Use
  Company Number: S03-USA-04218-01

PATIENT
  Age: 50 Year
  Sex: Female

DRUGS (9)
  1. LEXAPRO [Suspect]
     Indication: DEPRESSION
     Dosage: 10 MG QD PO
     Route: 048
     Dates: start: 20030912, end: 20030901
  2. LEXAPRO [Suspect]
     Indication: DEPRESSION
     Dosage: 5 MG QD PO
     Route: 048
     Dates: start: 20030901, end: 20030901
  3. SINGULAIR [Concomitant]
  4. MICARDIS [Concomitant]
  5. NEXIUM [Concomitant]
  6. DEMEROL [Concomitant]
  7. PHENERGAN [Concomitant]
  8. XANAX (AQLPRAZOLAM) [Concomitant]
  9. PREMARIN [Concomitant]

REACTIONS (15)
  - ANXIETY DISORDER [None]
  - AURA [None]
  - COMPLEX PARTIAL SEIZURES [None]
  - DEPRESSED LEVEL OF CONSCIOUSNESS [None]
  - DIFFICULTY IN WALKING [None]
  - DRUG TOXICITY [None]
  - DYSARTHRIA [None]
  - DYSPNOEA [None]
  - FATIGUE [None]
  - HEMIPARESIS [None]
  - IDIOSYNCRATIC DRUG REACTION [None]
  - MIGRAINE [None]
  - PALPITATIONS [None]
  - SPEECH DISORDER [None]
  - TREMOR [None]
